FAERS Safety Report 6068266-2 (Version None)
Quarter: 2009Q1

REPORT INFORMATION
  Report Type: 
  Country: None (occurrence: None)
  Receive Date: 20090206
  Receipt Date: 20090127
  Transmission Date: 20090719
  Serious: Yes (Hospitalization, Other)
  Sender: FDA-Public Use
  Company Number: PHHY2008JP29510

PATIENT
  Sex: Male

DRUGS (6)
  1. DIOVAN [Suspect]
     Indication: HYPERTENSION
     Dosage: 80 MG, QD
     Route: 048
     Dates: start: 20060812, end: 20060926
  2. DIOVAN [Suspect]
     Dosage: 80 MG, QD
     Route: 048
     Dates: start: 20070121, end: 20070210
  3. DIOVAN [Suspect]
     Dosage: 80 MG, QD
     Dates: start: 20071217
  4. AMLODIPINE [Suspect]
     Dosage: 2.5 MG
     Route: 048
     Dates: start: 20060912, end: 20060926
  5. AMLODIPINE [Suspect]
     Dosage: 5 MG
     Route: 048
     Dates: start: 20070210, end: 20070224
  6. AMLODIPINE [Suspect]
     Dosage: 5 MG
     Route: 048
     Dates: start: 20071119

REACTIONS (10)
  - AGRANULOCYTOSIS [None]
  - BLOOD GLUCOSE INCREASED [None]
  - CELLULITIS [None]
  - DYSPHAGIA [None]
  - HAEMATOCRIT DECREASED [None]
  - HAEMOGLOBIN DECREASED [None]
  - NEUTROPHIL COUNT DECREASED [None]
  - NEUTROPHIL COUNT INCREASED [None]
  - PLATELET COUNT DECREASED [None]
  - TRISMUS [None]
